FAERS Safety Report 21587078 (Version 1)
Quarter: 2022Q4

REPORT INFORMATION
  Report Type: Spontaneous
  Country: US (occurrence: US)
  Receive Date: 20221114
  Receipt Date: 20221114
  Transmission Date: 20230112
  Serious: Yes (Other)
  Sender: FDA-Public Use
  Company Number: US-AUROBINDO-AUR-APL-2022-048030

PATIENT
  Age: 19 Month
  Sex: Female

DRUGS (6)
  1. DEXRAZOXANE [Suspect]
     Active Substance: DEXRAZOXANE
     Indication: Hepatoblastoma
     Dosage: UNK
     Route: 065
  2. FLUOROURACIL [Suspect]
     Active Substance: FLUOROURACIL
     Indication: Hepatoblastoma
     Dosage: UNK
     Route: 065
  3. CISPLATIN [Suspect]
     Active Substance: CISPLATIN
     Indication: Hepatoblastoma
     Dosage: UNK
     Route: 065
  4. DOXORUBICIN [Suspect]
     Active Substance: DOXORUBICIN
     Indication: Hepatoblastoma
     Dosage: UNK
     Route: 065
  5. VINCRISTINE SULFATE [Suspect]
     Active Substance: VINCRISTINE SULFATE
     Indication: Hepatoblastoma
     Dosage: UNK
     Route: 065
  6. LABETALOL [Concomitant]
     Active Substance: LABETALOL\LABETALOL HYDROCHLORIDE
     Indication: Hypertension
     Dosage: UNK
     Route: 065

REACTIONS (4)
  - Streptococcal bacteraemia [Unknown]
  - Enterococcal bacteraemia [Unknown]
  - Febrile neutropenia [Unknown]
  - Drug ineffective [Unknown]
